FAERS Safety Report 5321760-1 (Version None)
Quarter: 2007Q2

REPORT INFORMATION
  Report Type: 
  Country: None (occurrence: None)
  Receive Date: 20070510
  Receipt Date: 20070501
  Transmission Date: 20071010
  Serious: Yes (Other)
  Sender: FDA-Public Use
  Company Number: US-PFIZER INC-2007016764

PATIENT
  Sex: Female
  Weight: 86.2 kg

DRUGS (3)
  1. CHANTIX [Suspect]
     Indication: SMOKING CESSATION THERAPY
     Route: 048
  2. VITAMINS [Concomitant]
  3. CARBAMAZEPINE [Concomitant]

REACTIONS (4)
  - ACRODERMATITIS [None]
  - EXFOLIATIVE RASH [None]
  - PAIN IN EXTREMITY [None]
  - RASH [None]
